FAERS Safety Report 6345606-8 (Version None)
Quarter: 2009Q3

REPORT INFORMATION
  Report Type: 
  Country: None (occurrence: None)
  Receive Date: 20090909
  Receipt Date: 20090901
  Transmission Date: 20100115
  Serious: Yes (Death, Other)
  Sender: FDA-Public Use
  Company Number: US-ROCHE-639535

PATIENT
  Sex: Male
  Weight: 73.5 kg

DRUGS (2)
  1. CAPECITABINE [Suspect]
     Indication: COLORECTAL CANCER
     Dosage: 1000 MG AM AND PM
     Route: 048
     Dates: start: 20090406, end: 20090528
  2. OXALIPLATIN [Suspect]
     Indication: DRUG USE FOR UNKNOWN INDICATION
     Dosage: GIVEN ONLY ONCE THUS FAR.
     Route: 065
     Dates: start: 20090604

REACTIONS (8)
  - ASTHENIA [None]
  - BELLIGERENCE [None]
  - DYSURIA [None]
  - ECCHYMOSIS [None]
  - FALL [None]
  - HYPOPHAGIA [None]
  - MALIGNANT NEOPLASM PROGRESSION [None]
  - OEDEMA [None]
